FAERS Safety Report 4417391-8 (Version None)
Quarter: 2004Q3

REPORT INFORMATION
  Report Type: 
  Country: None (occurrence: None)
  Receive Date: 20040803
  Receipt Date: 20040727
  Transmission Date: 20050211
  Serious: No
  Sender: FDA-Public Use
  Company Number: 2004UW10399

PATIENT
  Age: 74 Year
  Sex: Male
  Weight: 90.7194 kg

DRUGS (9)
  1. CASODEX [Suspect]
     Indication: PROSTATE CANCER
     Dosage: 50 MG QD - 150 MG QD PO
     Route: 048
     Dates: start: 20021002, end: 20040517
  2. ZOLADEX [Suspect]
     Indication: PROSTATE CANCER
  3. COREG [Concomitant]
  4. COUMADIN [Concomitant]
  5. FOLIC ACID [Concomitant]
  6. INDAPAMIDE [Concomitant]
  7. PRAVACHOL [Concomitant]
  8. TIAZAC [Concomitant]
  9. CELEBREX [Concomitant]

REACTIONS (9)
  - ANXIETY [None]
  - AZOTAEMIA [None]
  - DRUG INTOLERANCE [None]
  - FEELING ABNORMAL [None]
  - NOCTURIA [None]
  - PROSTATIC SPECIFIC ANTIGEN INCREASED [None]
  - RENAL FAILURE ACUTE [None]
  - WEIGHT DECREASED [None]
  - WEIGHT INCREASED [None]
